FAERS Safety Report 7071340-5 (Version None)
Quarter: 2010Q4

REPORT INFORMATION
  Report Type: 
  Country: None (occurrence: None)
  Receive Date: 20101021
  Receipt Date: 20101005
  Transmission Date: 20110411
  Serious: Yes (Hospitalization, Other)
  Sender: FDA-Public Use
  Company Number: CIP10001985

PATIENT
  Age: 70 Year
  Sex: Female
  Weight: 44.5 kg

DRUGS (16)
  1. ACTONEL [Suspect]
     Dosage: 35 MG ONCE WEEKLY, ORAL
     Route: 048
     Dates: start: 20031023, end: 20080101
  2. FOSAMAX [Suspect]
     Indication: OSTEOPOROSIS
     Dosage: 70 MG ONCE WEEKLY, ORAL
     Route: 048
     Dates: start: 19980101, end: 20031023
  3. FOSAMAX [Suspect]
     Indication: OSTEOPOROSIS PROPHYLAXIS
     Dosage: 70 MG ONCE WEEKLY, ORAL
     Route: 048
     Dates: start: 19980101, end: 20031023
  4. WELLBUTRIN [Concomitant]
  5. MULTIVITAMIN /01229101/ (VITAMINS NOS) [Concomitant]
  6. SINGULAIR [Concomitant]
  7. ERGOCALCIFEROL [Concomitant]
  8. LIPITOR [Concomitant]
  9. OMEGA 3 FISH OIL (FISH OIL) [Concomitant]
  10. CALCIUM (CALCIUM) [Concomitant]
  11. VITAMIN C /00008001/ (ASCORBIC ACID) [Concomitant]
  12. LEXAPRO [Concomitant]
  13. COUMADIN [Concomitant]
  14. FEROCON (FERROUS FUMARATE, FOLIC ACID, VITAMIN-B-KOMPLEX STANDARD) [Concomitant]
  15. CELEBREX [Concomitant]
  16. XANAX [Concomitant]

REACTIONS (26)
  - ANAEMIA [None]
  - ARTHRALGIA [None]
  - BALANCE DISORDER [None]
  - BONE DISORDER [None]
  - CONTUSION [None]
  - DEHYDRATION [None]
  - DIZZINESS [None]
  - DRUG INTOLERANCE [None]
  - ECCHYMOSIS [None]
  - EMPHYSEMA [None]
  - FALL [None]
  - FEMORAL NECK FRACTURE [None]
  - FEMUR FRACTURE [None]
  - GAIT DISTURBANCE [None]
  - HAEMATOCRIT DECREASED [None]
  - HAEMOGLOBIN DECREASED [None]
  - LOW TURNOVER OSTEOPATHY [None]
  - MUSCLE INJURY [None]
  - MUSCULAR WEAKNESS [None]
  - OSTEOARTHRITIS [None]
  - PATELLOFEMORAL PAIN SYNDROME [None]
  - ROAD TRAFFIC ACCIDENT [None]
  - STRESS FRACTURE [None]
  - TRAUMATIC FRACTURE [None]
  - UPPER RESPIRATORY TRACT INFECTION [None]
  - VOMITING [None]
